FAERS Safety Report 4357478-1 (Version None)
Quarter: 2004Q2

REPORT INFORMATION
  Report Type: 
  Country: None (occurrence: None)
  Receive Date: 20040510
  Receipt Date: 20040427
  Transmission Date: 20050107
  Serious: Yes (Hospitalization)
  Sender: FDA-Public Use
  Company Number: RENA-10963

PATIENT
  Age: 66 Year
  Sex: Female
  Weight: 42.5 kg

DRUGS (12)
  1. RENAGEL [Suspect]
     Indication: HYPERPHOSPHATAEMIA
     Dosage: 2.5 G TID PO
     Route: 048
     Dates: start: 20030812, end: 20040312
  2. KALIMATE [Suspect]
     Dosage: 15 G QD PO
     Route: 048
     Dates: end: 20040312
  3. ASPIRIN [Suspect]
     Dosage: 100 MG QD PO
     Route: 048
     Dates: end: 20040312
  4. LACTOBACILLUS BIFIDUS [Concomitant]
  5. DIGOXIN [Concomitant]
  6. ZOPICLONE [Concomitant]
  7. FAMOTIDINE [Concomitant]
  8. ISOSORBIDE DINITRATE [Concomitant]
  9. NICERITROL [Concomitant]
  10. DISOPYRAMIDE [Concomitant]
  11. NIFEDIPINE [Concomitant]
  12. CANDESARTAN CILEXETIL [Concomitant]

REACTIONS (3)
  - BLOOD PRESSURE DECREASED [None]
  - GASTROINTESTINAL HAEMORRHAGE [None]
  - HAEMATOCRIT DECREASED [None]
